FAERS Safety Report 5393048-4 (Version None)
Quarter: 2007Q3

REPORT INFORMATION
  Report Type: 
  Country: None (occurrence: None)
  Receive Date: 20070719
  Receipt Date: 20070712
  Transmission Date: 20080115
  Serious: Yes (Hospitalization)
  Sender: FDA-Public Use
  Company Number: 2007-03296

PATIENT
  Age: 66 Year
  Sex: Female

DRUGS (1)
  1. METHYLPREDNISOLONE 4MG TAB [Suspect]
     Indication: BASEDOW'S DISEASE
     Dosage: 1 G DAILY X3DAYS, THEN OFF 4 DAYS, INTRAVENOUS
     Route: 042

REACTIONS (1)
  - ACUTE MYOCARDIAL INFARCTION [None]
